FAERS Safety Report 9384764 (Version 3)
Quarter: 2014Q1

REPORT INFORMATION
  Report Type: Spontaneous
  Country: US (occurrence: US)
  Receive Date: 20130705
  Receipt Date: 20140317
  Transmission Date: 20141002
  Serious: Yes (Death, Hospitalization)
  Sender: FDA-Public Use
  Company Number: US-B.I. PHARMACEUTICALS,INC./RIDGEFIELD-2013-BI-18730BP

PATIENT
  Sex: Male
  Weight: 68.04 kg

DRUGS (16)
  1. PRADAXA [Suspect]
     Indication: ATRIAL FIBRILLATION
     Route: 065
     Dates: start: 2010, end: 20110615
  2. AMBIEN [Concomitant]
     Dosage: 10 MG
     Route: 048
  3. ARICEPT [Concomitant]
     Dosage: 10 MG
     Route: 048
  4. COREG [Concomitant]
     Dosage: 6.25 MG
     Route: 048
  5. ISOSORBIDE MONONITRATE [Concomitant]
     Dosage: 60 MG
     Route: 048
  6. LANTUS [Concomitant]
     Dosage: 39 U
     Route: 065
  7. LORTAB [Concomitant]
     Route: 065
  8. MEGACE [Concomitant]
     Dosage: 80 MG
     Route: 048
  9. MIRAPEX [Concomitant]
     Route: 048
  10. NEURONTIN [Concomitant]
     Dosage: 1200 MG
     Route: 048
  11. NIASPAN ER [Concomitant]
     Dosage: 500 MG
     Route: 048
  12. NOVOLOG [Concomitant]
     Route: 065
  13. NEXIUM [Concomitant]
     Dosage: 40 MG
     Route: 048
  14. PRAVASTATIN [Concomitant]
     Dosage: 10 MG
     Route: 048
  15. SYNTHROID [Concomitant]
     Dosage: 50 MCG
     Route: 048
  16. WELCHOL [Concomitant]
     Route: 048

REACTIONS (6)
  - Upper gastrointestinal haemorrhage [Fatal]
  - Haemorrhagic anaemia [Unknown]
  - Gastric ulcer [Unknown]
  - Oesophagitis [Unknown]
  - Gastritis bacterial [Unknown]
  - Cardiac failure congestive [Unknown]
